FAERS Safety Report 6262989-8 (Version None)
Quarter: 2009Q3

REPORT INFORMATION
  Report Type: 
  Country: None (occurrence: None)
  Receive Date: 20090710
  Receipt Date: 20070628
  Transmission Date: 20100115
  Serious: Yes (Other)
  Sender: FDA-Public Use
  Company Number: US-ASTRAZENECA-2006UW25291

PATIENT
  Age: 56 Year
  Sex: Male
  Weight: 134.7 kg

DRUGS (43)
  1. SEROQUEL [Suspect]
     Indication: PSYCHOTIC DISORDER
     Route: 048
     Dates: start: 20040501, end: 20040801
  2. SEROQUEL [Suspect]
     Indication: DEPRESSED MOOD
     Route: 048
     Dates: start: 20040501, end: 20040801
  3. SEROQUEL [Suspect]
     Indication: INSOMNIA
     Route: 048
     Dates: start: 20040501, end: 20040801
  4. SEROQUEL [Suspect]
     Route: 048
     Dates: start: 20040501, end: 20040801
  5. SEROQUEL [Suspect]
     Route: 048
     Dates: start: 20040501, end: 20040801
  6. SEROQUEL [Suspect]
     Route: 048
     Dates: start: 20040501, end: 20040801
  7. SEROQUEL [Suspect]
     Dosage: 100-200 MG
     Route: 048
     Dates: start: 20040604
  8. SEROQUEL [Suspect]
     Dosage: 100-200 MG
     Route: 048
     Dates: start: 20040604
  9. SEROQUEL [Suspect]
     Dosage: 100-200 MG
     Route: 048
     Dates: start: 20040604
  10. GEODON [Concomitant]
  11. ZYPREXA [Concomitant]
  12. METHADOSE [Concomitant]
  13. CLONIDINE HCL [Concomitant]
  14. CARISOPRODOL [Concomitant]
  15. DURAGESIC-100 [Concomitant]
  16. ACTOS [Concomitant]
  17. ALBUTEROL [Concomitant]
  18. CILOSTAZOL [Concomitant]
  19. QUININE SULFATE [Concomitant]
  20. DIAZEPAM [Concomitant]
  21. AMBIEN [Concomitant]
  22. MAVIK [Concomitant]
  23. CEFUROXIME [Concomitant]
  24. OXYCODONE [Concomitant]
  25. LYRICA [Concomitant]
  26. MEPERIDINE HCL [Concomitant]
  27. TRANDOLAPRIL [Concomitant]
  28. PHENERGAN [Concomitant]
  29. PROTONIX [Concomitant]
  30. LIPITOR [Concomitant]
  31. SULPHAMETHOXAZOLE [Concomitant]
  32. PREVACID [Concomitant]
  33. AVAPRO [Concomitant]
  34. ALLEGRA [Concomitant]
  35. AVINZA [Concomitant]
  36. FLONASE [Concomitant]
  37. FLOMAX [Concomitant]
  38. REGLAN [Concomitant]
  39. GLUCOPHAGE [Concomitant]
  40. LACTULOSE [Concomitant]
  41. REMERON [Concomitant]
  42. SOMA [Concomitant]
  43. DITROPAN [Concomitant]

REACTIONS (5)
  - DIABETES MELLITUS [None]
  - DIABETIC KETOACIDOSIS [None]
  - DIABETIC NEUROPATHY [None]
  - METABOLIC SYNDROME [None]
  - TYPE 2 DIABETES MELLITUS [None]
